FAERS Safety Report 7942051-6 (Version None)
Quarter: 2011Q4

REPORT INFORMATION
  Report Type: 
  Country: None (occurrence: None)
  Receive Date: 20111128
  Receipt Date: 20111128
  Transmission Date: 20120403
  Serious: Yes (Other)
  Sender: FDA-Public Use
  Company Number: None

PATIENT
  Age: 57 Year
  Sex: Male
  Weight: 104.32 kg

DRUGS (2)
  1. IBUPROFEN [Concomitant]
     Indication: PAIN
     Dosage: 2
     Route: 048
  2. DILTIAZEM [Suspect]
     Indication: HYPERTENSION
     Dosage: 1
     Route: 048

REACTIONS (1)
  - VENTRICULAR EXTRASYSTOLES [None]
